FAERS Safety Report 8909750 (Version 1)
Quarter: 2012Q4

REPORT INFORMATION
  Report Type: Spontaneous
  Country: US (occurrence: None)
  Receive Date: 20121109
  Receipt Date: 20121109
  Transmission Date: 20130627
  Serious: Yes (Death, Other)
  Sender: FDA-Public Use
  Company Number: TPA2012A08792

PATIENT
  Age: 76 Year
  Sex: Female
  Weight: 71.67 kg

DRUGS (2)
  1. ACTOS (PIOGLITAZONE HYDROCHLORIDE) [Suspect]
     Indication: TYPE 2 DIABETES MELLITUS
  2. GLIMEPIRIDE (GLIMEPIRIDE) [Concomitant]

REACTIONS (4)
  - Urethral cancer metastatic [None]
  - Sepsis [None]
  - Intestinal obstruction [None]
  - Urinary tract infection [None]
